FAERS Safety Report 18522670 (Version 1)
Quarter: 2020Q4

REPORT INFORMATION
  Report Type: Spontaneous
  Country: CH (occurrence: CH)
  Receive Date: 20201119
  Receipt Date: 20201119
  Transmission Date: 20210114
  Serious: Yes (Other)
  Sender: FDA-Public Use
  Company Number: CH-BAYER-2020-220431

PATIENT
  Age: 35 Year
  Sex: Female
  Weight: 72 kg

DRUGS (1)
  1. JAYDESS [Suspect]
     Active Substance: LEVONORGESTREL
     Indication: CONTRACEPTION
     Dosage: 14 ?G PER DAY CONTINUOUSLY
     Route: 015
     Dates: start: 20191106, end: 20200926

REACTIONS (6)
  - Pregnancy with contraceptive device [None]
  - Amenorrhoea [None]
  - Drug ineffective [None]
  - Haemorrhage in pregnancy [None]
  - Placental disorder [None]
  - Abortion spontaneous [None]

NARRATIVE: CASE EVENT DATE: 201912
